FAERS Safety Report 4705603-2 (Version None)
Quarter: 2005Q3

REPORT INFORMATION
  Report Type: 
  Country: None (occurrence: None)
  Receive Date: 20050701
  Receipt Date: 20040728
  Transmission Date: 20060218
  Serious: Yes (Hospitalization)
  Sender: FDA-Public Use
  Company Number: US-BOEHRINGER INGELHEIM PHARMACEUTICALS, INC.-2004-BP-06221BP

PATIENT
  Sex: Male
  Weight: 81.2 kg

DRUGS (4)
  1. TIPRANAVIR / RITONAVIR CAPSULES [Suspect]
     Indication: HIV INFECTION
     Route: 048
     Dates: start: 20040423
  2. FUZEON [Concomitant]
     Indication: HIV INFECTION
     Route: 058
     Dates: start: 20040423
  3. VIDEX [Concomitant]
     Indication: HIV INFECTION
     Route: 048
     Dates: start: 20040423
  4. VIREAD [Concomitant]
     Indication: HIV INFECTION
     Route: 048
     Dates: start: 20020401

REACTIONS (1)
  - CYTOMEGALOVIRUS CHORIORETINITIS [None]
